FAERS Safety Report 14294704 (Version 1)
Quarter: 2017Q4

REPORT INFORMATION
  Report Type: Spontaneous
  Country: IT (occurrence: IT)
  Receive Date: 20171218
  Receipt Date: 20171218
  Transmission Date: 20180321
  Serious: Yes (Hospitalization)
  Sender: FDA-Public Use
  Company Number: IT-CIPLA LTD.-2017IT24178

PATIENT

DRUGS (1)
  1. CETIRIZINE [Suspect]
     Active Substance: CETIRIZINE HYDROCHLORIDE
     Dosage: 10 MG, UNK (AS NECESSARY)
     Route: 048
     Dates: start: 20170806, end: 20170806

REACTIONS (3)
  - Cognitive disorder [Unknown]
  - Vertigo [Unknown]
  - Sopor [Unknown]

NARRATIVE: CASE EVENT DATE: 20170806
